FAERS Safety Report 6936141-4 (Version None)
Quarter: 2010Q3

REPORT INFORMATION
  Report Type: 
  Country: None (occurrence: None)
  Receive Date: 20100817
  Receipt Date: 20100802
  Transmission Date: 20110219
  Serious: Yes (Death, Other)
  Sender: FDA-Public Use
  Company Number: 2010AP001639

PATIENT
  Age: 50 Year
  Sex: Male

DRUGS (3)
  1. FLUOXETINE HCL [Suspect]
  2. CARBAMAZEPINE [Suspect]
  3. ETHANOL (ETHANOL) [Suspect]

REACTIONS (4)
  - DRUG INTERACTION [None]
  - DRUG TOXICITY [None]
  - FATTY LIVER ALCOHOLIC [None]
  - SEROTONIN SYNDROME [None]
